FAERS Safety Report 12866808 (Version 4)
Quarter: 2020Q4

REPORT INFORMATION
  Report Type: Spontaneous
  Country: KR (occurrence: KR)
  Receive Date: 20161020
  Receipt Date: 20201125
  Transmission Date: 20210113
  Serious: Yes (Hospitalization, Other)
  Sender: FDA-Public Use
  Company Number: KR-009507513-1610KOR005968

PATIENT
  Age: 68 Year
  Sex: Female
  Weight: 48 kg

DRUGS (8)
  1. LANSTON [Concomitant]
     Active Substance: LANSOPRAZOLE
     Indication: PROPHYLAXIS AGAINST GASTROINTESTINAL ULCER
     Dosage: 15 MG, QD
     Route: 048
     Dates: start: 20130423
  2. DILATREND [Concomitant]
     Active Substance: CARVEDILOL
     Indication: ESSENTIAL HYPERTENSION
     Dosage: 3.125 MG, BID
     Route: 048
     Dates: start: 20130409
  3. PLATLESS [Concomitant]
     Active Substance: CLOPIDOGREL BISULFATE
     Indication: THROMBOSIS PROPHYLAXIS
     Dosage: 75 MG, QD
     Route: 048
     Dates: start: 20140627
  4. BIO ASTRIX [Concomitant]
     Indication: THROMBOSIS PROPHYLAXIS
     Dosage: 100 MG, QD, FORMULATION: ENTERIC COATED
     Route: 048
     Dates: start: 20150421
  5. CALTEO [Concomitant]
     Indication: OSTEOPOROSIS
     Dosage: 0.5 TABLET, QD, STRENGTH REPORTED AS 40 (UNITS NOT PROVIDED)
     Route: 048
     Dates: start: 20160229
  6. ATOZET [Suspect]
     Active Substance: ATORVASTATIN CALCIUM\EZETIMIBE
     Indication: PRIMARY HYPERCHOLESTEROLAEMIA
     Dosage: 1 TABLET (10/10 MG) /1 DAY(QD)
     Route: 048
     Dates: start: 20160229, end: 20160908
  7. APROVEL [Concomitant]
     Active Substance: IRBESARTAN
     Indication: ESSENTIAL HYPERTENSION
     Dosage: 75 MG, BID
     Route: 048
     Dates: start: 20130409, end: 20160908
  8. VASTINAN MR [Concomitant]
     Indication: MYOCARDIAL INFARCTION
     Dosage: 35 MG, QD
     Route: 048
     Dates: start: 20140627

REACTIONS (2)
  - Gastric polyps [Recovered/Resolved]
  - Helicobacter infection [Recovered/Resolved]

NARRATIVE: CASE EVENT DATE: 20160720
